FAERS Safety Report 19500742 (Version 1)
Quarter: 2021Q3

REPORT INFORMATION
  Report Type: Spontaneous
  Country: US (occurrence: US)
  Receive Date: 20210707
  Receipt Date: 20210707
  Transmission Date: 20211014
  Serious: Yes (Other)
  Sender: FDA-Public Use
  Company Number: US-GLAXOSMITHKLINE-US2021GSK144406

PATIENT
  Sex: Female

DRUGS (11)
  1. ZANTAC [Suspect]
     Active Substance: RANITIDINE HYDROCHLORIDE
     Indication: ULCER
  2. RANITIDINE. [Suspect]
     Active Substance: RANITIDINE
     Indication: ULCER
  3. RANITIDINE CAPSULE [Suspect]
     Active Substance: RANITIDINE
     Indication: ULCER
  4. RANITIDINE. [Suspect]
     Active Substance: RANITIDINE
     Indication: GASTROOESOPHAGEAL REFLUX DISEASE
     Dosage: UNK, QD
     Route: 065
     Dates: start: 198101, end: 201612
  5. ZANTAC [Suspect]
     Active Substance: RANITIDINE HYDROCHLORIDE
     Indication: GASTROOESOPHAGEAL REFLUX DISEASE
     Dosage: UNK UNK, QD
     Route: 065
     Dates: start: 198101, end: 201612
  6. ZANTAC [Suspect]
     Active Substance: RANITIDINE HYDROCHLORIDE
     Indication: ULCER
  7. RANITIDINE CAPSULE [Suspect]
     Active Substance: RANITIDINE
     Indication: ULCER
  8. ZANTAC [Suspect]
     Active Substance: RANITIDINE HYDROCHLORIDE
     Indication: GASTROOESOPHAGEAL REFLUX DISEASE
     Dosage: UNK UNK, QD
     Route: 065
     Dates: start: 198101, end: 201612
  9. ZANTAC [Suspect]
     Active Substance: RANITIDINE HYDROCHLORIDE
     Indication: GASTROOESOPHAGEAL REFLUX DISEASE
     Dosage: UNK UNK, QD
     Route: 065
     Dates: start: 198101, end: 201612
  10. ZANTAC [Suspect]
     Active Substance: RANITIDINE HYDROCHLORIDE
     Indication: ULCER
  11. RANITIDINE CAPSULE [Suspect]
     Active Substance: RANITIDINE
     Indication: GASTROOESOPHAGEAL REFLUX DISEASE
     Dosage: UNK UNK, QD
     Route: 065
     Dates: start: 198101, end: 201612

REACTIONS (1)
  - Pancreatic carcinoma [Unknown]
